FAERS Safety Report 7757179-3 (Version None)
Quarter: 2011Q3

REPORT INFORMATION
  Report Type: 
  Country: None (occurrence: None)
  Receive Date: 20110916
  Receipt Date: 20110909
  Transmission Date: 20111222
  Serious: Yes (Other)
  Sender: FDA-Public Use
  Company Number: DE-UCBSA-041062

PATIENT
  Sex: Female

DRUGS (2)
  1. VIMPAT [Suspect]
     Dates: start: 20110907
  2. KEPPRA [Concomitant]
     Dates: start: 20110301

REACTIONS (4)
  - HEADACHE [None]
  - EPILEPSY [None]
  - HYPOAESTHESIA [None]
  - LOSS OF CONSCIOUSNESS [None]
